FAERS Safety Report 8588736-2 (Version None)
Quarter: 2012Q3

REPORT INFORMATION
  Report Type: 
  Country: None (occurrence: None)
  Receive Date: 20120813
  Receipt Date: 20120808
  Transmission Date: 20120928
  Serious: Yes (Death)
  Sender: FDA-Public Use
  Company Number: PHHY2012MX069106

PATIENT
  Sex: Female

DRUGS (2)
  1. STALEVO 100 [Suspect]
     Indication: PARKINSON'S DISEASE
     Dosage: 4 DF, DAILY
     Dates: start: 20110801
  2. SPIRIVA [Concomitant]
     Dosage: 1 DF, UNK
     Dates: start: 20100801, end: 20120701

REACTIONS (1)
  - RESPIRATORY DISORDER [None]
